FAERS Safety Report 8289806-9 (Version None)
Quarter: 2012Q2

REPORT INFORMATION
  Report Type: 
  Country: None (occurrence: None)
  Receive Date: 20120417
  Receipt Date: 20120413
  Transmission Date: 20120825
  Serious: No
  Sender: FDA-Public Use
  Company Number: US-PFIZER INC-2012092791

PATIENT
  Sex: Male
  Weight: 77.098 kg

DRUGS (2)
  1. IBUPROFEN (ADVIL) [Suspect]
     Indication: HYPERSENSITIVITY
  2. IBUPROFEN (ADVIL) [Suspect]
     Indication: SINUS HEADACHE
     Dosage: UNKNOWN DOSE OF 2 CAPSULES, UNK
     Route: 048
     Dates: start: 20120413

REACTIONS (1)
  - URTICARIA [None]
